FAERS Safety Report 6179702-5 (Version None)
Quarter: 2009Q2

REPORT INFORMATION
  Report Type: 
  Country: None (occurrence: None)
  Receive Date: 20090505
  Receipt Date: 20090428
  Transmission Date: 20091009
  Serious: Yes (Other)
  Sender: FDA-Public Use
  Company Number: JP-PFIZER INC-2009203023

PATIENT

DRUGS (15)
  1. FLAVERIC [Suspect]
     Indication: COUGH
     Dosage: 80 MG/DAY
     Route: 048
     Dates: start: 20090413
  2. CARDENALIN [Suspect]
  3. SODIUM BICARBONATE [Suspect]
     Route: 048
  4. CONIEL [Suspect]
     Route: 048
  5. ALLOPURINOL [Suspect]
     Route: 048
  6. LASIX [Suspect]
  7. ATELEC [Suspect]
     Route: 048
  8. RENIVACE [Suspect]
  9. MICARDIS [Suspect]
  10. LAFUTIDINE [Suspect]
  11. CALCIUM POLYSTYRENE SULFONATE [Suspect]
  12. KREMEZIN [Suspect]
  13. MUCODYNE [Suspect]
  14. EPOGIN [Suspect]
  15. FLURBIPROFEN [Suspect]

REACTIONS (1)
  - BLOOD CREATININE INCREASED [None]
